FAERS Safety Report 15463434 (Version 1)
Quarter: 2018Q4

REPORT INFORMATION
  Report Type: Report from Study
  Country: US (occurrence: US)
  Receive Date: 20181004
  Receipt Date: 20181004
  Transmission Date: 20190204
  Serious: Yes (Hospitalization, Other)
  Sender: FDA-Public Use
  Company Number: US-ROCHE-2190864

PATIENT
  Age: 71 Year
  Sex: Female
  Weight: 52.21 kg

DRUGS (2)
  1. OCREVUS [Suspect]
     Active Substance: OCRELIZUMAB
     Dosage: ONGOING; YES
     Route: 042
  2. OCREVUS [Suspect]
     Active Substance: OCRELIZUMAB
     Indication: PRIMARY PROGRESSIVE MULTIPLE SCLEROSIS
     Dosage: ONGOING-UNKNOWN
     Route: 042
     Dates: start: 201804

REACTIONS (6)
  - Urinary tract infection [Recovered/Resolved]
  - Blood potassium decreased [Unknown]
  - Pain in jaw [Unknown]
  - Trigeminal neuralgia [Unknown]
  - Pain [Unknown]
  - Muscle spasticity [Unknown]

NARRATIVE: CASE EVENT DATE: 201808
